FAERS Safety Report 7595201-8 (Version None)
Quarter: 2011Q3

REPORT INFORMATION
  Report Type: 
  Country: None (occurrence: None)
  Receive Date: 20110707
  Receipt Date: 20110701
  Transmission Date: 20111222
  Serious: Yes (Hospitalization)
  Sender: FDA-Public Use
  Company Number: DK-PFIZER INC-2011148553

PATIENT
  Age: 62 Year
  Sex: Male

DRUGS (4)
  1. LEVOTHYROXINE [Concomitant]
     Dosage: 150 UG, 1X/DAY
     Dates: start: 20060627
  2. SOMATROPIN [Suspect]
     Indication: HYPOPITUITARISM
     Dosage: 0.4 MG, 1X/DAY
     Dates: start: 20070522
  3. TESTOSTERONE [Concomitant]
     Dosage: 175 MG, UNK
     Dates: start: 20091110
  4. HYDROCORTISONE [Concomitant]
     Dosage: 25 MG, 1X/DAY
     Dates: start: 20100708

REACTIONS (1)
  - CEREBROVASCULAR ACCIDENT [None]
